FAERS Safety Report 5613981-5 (Version None)
Quarter: 2008Q1

REPORT INFORMATION
  Report Type: 
  Country: None (occurrence: None)
  Receive Date: 20080129
  Receipt Date: 20080121
  Transmission Date: 20080703
  Serious: Yes (Death)
  Sender: FDA-Public Use
  Company Number: TCI2008A00227

PATIENT
  Age: 77 Year
  Sex: Male

DRUGS (1)
  1. LEUPROLIDE ACETATE [Suspect]
     Indication: PROSTATE CANCER
     Dosage: 11.25 MG (11.25 MG, 1 IN 12 WK) SUBCUTANEOUS
     Route: 058
     Dates: start: 20060922, end: 20070309

REACTIONS (2)
  - CARDIAC DISORDER [None]
  - SUDDEN CARDIAC DEATH [None]
